FAERS Safety Report 12608323 (Version 2)
Quarter: 2017Q1

REPORT INFORMATION
  Report Type: Spontaneous
  Country: AU (occurrence: AU)
  Receive Date: 20160729
  Receipt Date: 20170228
  Transmission Date: 20170428
  Serious: No
  Sender: FDA-Public Use
  Company Number: AU-PFIZER INC-2016364722

PATIENT
  Age: 11 Year
  Sex: Male
  Weight: 35.4 kg

DRUGS (1)
  1. GENOTROPIN GOQUICK [Suspect]
     Active Substance: SOMATROPIN
     Indication: GROWTH HORMONE DEFICIENCY
     Dosage: 7.6 MG, WEEKLY
     Route: 058

REACTIONS (4)
  - Wrong technique in product usage process [Recovered/Resolved]
  - Drug dose omission [Unknown]
  - Incorrect dose administered [Recovered/Resolved]
  - Drug effect incomplete [Unknown]

NARRATIVE: CASE EVENT DATE: 201605
